FAERS Safety Report 5425534-2 (Version None)
Quarter: 2007Q3

REPORT INFORMATION
  Report Type: 
  Country: None (occurrence: None)
  Receive Date: 20070824
  Receipt Date: 20070809
  Transmission Date: 20080115
  Serious: Yes (Hospitalization)
  Sender: FDA-Public Use
  Company Number: US-PFIZER INC-2007066329

PATIENT
  Age: 64 Year
  Sex: Male

DRUGS (2)
  1. PREDNISOLONE [Suspect]
     Indication: FACIAL PALSY
     Route: 048
  2. CHLOROPHENOXY HERBICIDES [Suspect]

REACTIONS (4)
  - BLOOD CREATININE INCREASED [None]
  - HYPERGLYCAEMIA [None]
  - HYPERKALAEMIA [None]
  - PANCREATITIS [None]
